FAERS Safety Report 17961762 (Version 1)
Quarter: 2020Q2

REPORT INFORMATION
  Report Type: Spontaneous
  Country: US (occurrence: US)
  Receive Date: 20200629
  Receipt Date: 20200629
  Transmission Date: 20200714
  Serious: Yes (Death)
  Sender: FDA-Public Use
  Company Number: None

PATIENT
  Age: 71 Year
  Sex: Male

DRUGS (4)
  1. URSODIOL. [Concomitant]
     Active Substance: URSODIOL
  2. L-THYROXINE [Concomitant]
     Active Substance: LEVOTHYROXINE
  3. UROXATRIAL [Concomitant]
  4. TACROLIMUS. [Suspect]
     Active Substance: TACROLIMUS
     Indication: LIVER TRANSPLANT
     Route: 048
     Dates: start: 20161021, end: 20200601

REACTIONS (1)
  - Death [None]

NARRATIVE: CASE EVENT DATE: 20200601
